FAERS Safety Report 13121089 (Version 2)
Quarter: 2017Q2

REPORT INFORMATION
  Report Type: Spontaneous
  Country: US (occurrence: US)
  Receive Date: 20170117
  Receipt Date: 20170510
  Transmission Date: 20170830
  Serious: No
  Sender: FDA-Public Use
  Company Number: US-009507513-1701USA001802

PATIENT
  Sex: Female
  Weight: 113.38 kg

DRUGS (2)
  1. NEXPLANON [Suspect]
     Active Substance: ETONOGESTREL
     Dosage: 1 ROD EVERY 3 YEARS
     Route: 059
     Dates: start: 20161018
  2. NEXPLANON [Suspect]
     Active Substance: ETONOGESTREL
     Dosage: UNK
     Route: 059
     Dates: start: 2014, end: 20161018

REACTIONS (5)
  - Complication associated with device [Recovered/Resolved]
  - No adverse event [Unknown]
  - Device difficult to use [Recovered/Resolved]
  - Expired product administered [Unknown]
  - Device breakage [Recovered/Resolved]
